FAERS Safety Report 18366071 (Version 1)
Quarter: 2020Q4

REPORT INFORMATION
  Report Type: Spontaneous
  Country: FR (occurrence: FR)
  Receive Date: 20201009
  Receipt Date: 20201009
  Transmission Date: 20210114
  Serious: Yes (Hospitalization, Other)
  Sender: FDA-Public Use
  Company Number: FR-MYLANLABS-2020M1084408

PATIENT
  Age: 46 Year
  Sex: Female

DRUGS (4)
  1. CYPROTERONE [Suspect]
     Active Substance: CYPROTERONE
     Indication: ANDROGENETIC ALOPECIA
  2. CYPROTERONE [Suspect]
     Active Substance: CYPROTERONE
     Indication: HORMONE REPLACEMENT THERAPY
     Dosage: 50 MILLIGRAM, QD
     Route: 048
  3. ESTRADIOL. [Suspect]
     Active Substance: ESTRADIOL
     Indication: ANDROGENETIC ALOPECIA
  4. ESTRADIOL. [Suspect]
     Active Substance: ESTRADIOL
     Indication: HORMONE THERAPY
     Dosage: 50 MILLIGRAM, QD
     Route: 065

REACTIONS (3)
  - Ischaemic stroke [Not Recovered/Not Resolved]
  - Paraesthesia [Not Recovered/Not Resolved]
  - Meningioma [Not Recovered/Not Resolved]
